FAERS Safety Report 7465576-9 (Version None)
Quarter: 2011Q2

REPORT INFORMATION
  Report Type: 
  Country: None (occurrence: None)
  Receive Date: 20110509
  Receipt Date: 20110505
  Transmission Date: 20111010
  Serious: Yes (Hospitalization)
  Sender: FDA-Public Use
  Company Number: CO-ROCHE-775486

PATIENT
  Sex: Male

DRUGS (3)
  1. ACTEMRA [Suspect]
     Indication: RHEUMATOID ARTHRITIS
     Route: 042
     Dates: start: 20090903
  2. DICLOFENAC [Concomitant]
     Indication: PAIN
     Dosage: FREQUENCY: AS NEEDED
     Route: 048
  3. TRAMADOL [Concomitant]
     Indication: PAIN
     Dosage: FREQUENCY: AS NEEDED
     Route: 048

REACTIONS (1)
  - GASTRIC NEOPLASM [None]
